FAERS Safety Report 21435767 (Version 17)
Quarter: 2024Q3

REPORT INFORMATION
  Report Type: Spontaneous
  Country: US (occurrence: US)
  Receive Date: 20221010
  Receipt Date: 20240708
  Transmission Date: 20241016
  Serious: Yes (Hospitalization, Other)
  Sender: UCB
  Company Number: US-UCBSA-2022044245

PATIENT
  Sex: Female
  Weight: 70 kg

DRUGS (8)
  1. CIMZIA [Suspect]
     Active Substance: CERTOLIZUMAB PEGOL
     Indication: Rheumatoid arthritis
     Dosage: 200 MILLIGRAM, EV 2 WEEKS(QOW)
     Route: 058
     Dates: start: 202108
  2. CIMZIA [Suspect]
     Active Substance: CERTOLIZUMAB PEGOL
     Indication: Psoriasis
     Dosage: 200 MILLIGRAM, EV 2 WEEKS(QOW)
     Route: 058
     Dates: start: 2022
  3. CIMZIA [Suspect]
     Active Substance: CERTOLIZUMAB PEGOL
     Dosage: 200 MILLIGRAM, EV 2 WEEKS(QOW)
     Route: 058
  4. CIMZIA [Suspect]
     Active Substance: CERTOLIZUMAB PEGOL
     Dosage: 200 MILLIGRAM, EV 2 WEEKS(QOW) HOLD FOR ANY INFECTION
     Route: 058
  5. CIMZIA [Suspect]
     Active Substance: CERTOLIZUMAB PEGOL
     Dosage: 200 MILLIGRAM, EV 2 WEEKS(QOW) HOLD FOR ANY INFECTION
     Route: 058
     Dates: start: 202403
  6. RASUVO [Concomitant]
     Active Substance: METHOTREXATE SODIUM
     Indication: Product used for unknown indication
     Dosage: UNK
  7. LEVOTHYROXINE [Concomitant]
     Active Substance: LEVOTHYROXINE\LEVOTHYROXINE SODIUM
     Indication: Product used for unknown indication
     Dosage: UNK
  8. PROLIA [Concomitant]
     Active Substance: DENOSUMAB
     Indication: Product used for unknown indication
     Dosage: UNK

REACTIONS (20)
  - Spinal operation [Unknown]
  - Tuberculosis [Unknown]
  - Abdominal pain upper [Unknown]
  - Diverticulitis [Unknown]
  - Arthralgia [Unknown]
  - Sinus congestion [Unknown]
  - Respiratory tract congestion [Unknown]
  - Illness [Unknown]
  - Sinusitis [Unknown]
  - Colostomy [Unknown]
  - Nausea [Unknown]
  - Abdominal discomfort [Unknown]
  - Anorectal operation [Unknown]
  - COVID-19 [Unknown]
  - Pain in extremity [Unknown]
  - Thermal burn [Unknown]
  - Intentional dose omission [Unknown]
  - Therapy interrupted [Unknown]
  - Drug ineffective [Unknown]
  - Condition aggravated [Unknown]

NARRATIVE: CASE EVENT DATE: 20230101
